FAERS Safety Report 6136038 (Version 4)
Quarter: 2012Q4

REPORT INFORMATION
  Report Type: 
  Country: CA (occurrence: CA)
  Receive Date: 20060926
  Receipt Date: 20121109
  Transmission Date: 20130627
  Serious: Yes (Disabling, Other)
  Sender: FDA-Public Use
  Company Number: PHHO2005CA14050

PATIENT
  Sex: Male

DRUGS (11)
  1. SANDOSTATINE LAR [Suspect]
     Indication: CARCINOID TUMOUR
     Dosage: 20 mg, every 3weeks
     Route: 030
     Dates: start: 20061115
  2. SANDOSTATINE LAR [Suspect]
     Dosage: 30 mg, every 3 weeks
     Dates: start: 20010904
  3. SANDOSTATINE LAR [Suspect]
     Dosage: 10 mg every 4 four weeks
     Dates: end: 20060921
  4. BETOPIC [Concomitant]
     Dosage: UNK
  5. LIPITOR [Concomitant]
  6. XALATAN [Concomitant]
  7. METHAZOLAMIDE [Concomitant]
  8. BRIMONIDINE OPHTHALMIC [Concomitant]
  9. PARIET [Concomitant]
  10. ATIVAN [Concomitant]
  11. ASPIRIN C [Concomitant]

REACTIONS (18)
  - Lung infection [Recovered/Resolved with Sequelae]
  - Sinusitis [Recovered/Resolved with Sequelae]
  - Diarrhoea [Not Recovered/Not Resolved]
  - Bradycardia [Not Recovered/Not Resolved]
  - Heart rate decreased [Unknown]
  - Hypotension [Unknown]
  - Blood pressure decreased [Unknown]
  - Asthenia [Unknown]
  - Malaise [Unknown]
  - Flushing [Unknown]
  - Hot flush [Unknown]
  - Chest discomfort [Unknown]
  - Feeling hot [Unknown]
  - Hypoglycaemia [Unknown]
  - Blood glucose decreased [Unknown]
  - Hyperglycaemia [Unknown]
  - Blood glucose increased [Unknown]
  - Fatigue [Unknown]
